FAERS Safety Report 6626166-0 (Version None)
Quarter: 2010Q1

REPORT INFORMATION
  Report Type: 
  Country: None (occurrence: None)
  Receive Date: 20100310
  Receipt Date: 20100226
  Transmission Date: 20100710
  Serious: Yes (Other)
  Sender: FDA-Public Use
  Company Number: PHHY2010JP09086

PATIENT
  Age: 58 Year
  Sex: Male

DRUGS (5)
  1. GLEEVEC [Suspect]
     Indication: CHRONIC MYELOID LEUKAEMIA
     Dosage: 600 MG DAILY
     Route: 048
  2. DASATINIB [Suspect]
     Indication: CHRONIC MYELOID LEUKAEMIA
     Dosage: 100 MG, UNK
  3. FLUDARABINE [Concomitant]
  4. BUSULFEX [Concomitant]
  5. MELPHALAN HYDROCHLORIDE [Concomitant]

REACTIONS (5)
  - DIARRHOEA [None]
  - MALAISE [None]
  - PLEURAL EFFUSION [None]
  - THROMBOCYTOPENIA [None]
  - TRANSPLANT FAILURE [None]
